FAERS Safety Report 11324082 (Version 1)
Quarter: 2015Q3

REPORT INFORMATION
  Report Type: Spontaneous
  Country: GB (occurrence: GB)
  Receive Date: 20150730
  Receipt Date: 20150730
  Transmission Date: 20151125
  Serious: Yes (Other)
  Sender: FDA-Public Use
  Company Number: GB-BAXTER-2015BAX040220

PATIENT
  Age: 85 Year
  Sex: Male

DRUGS (2)
  1. HUMAN ACTRAPID [Suspect]
     Active Substance: INSULIN HUMAN
     Indication: PRODUCT USED FOR UNKNOWN INDICATION
     Route: 065
     Dates: start: 20150713
  2. GLUCOSE 10% W/V SOLUTION FOR INFUSION BP [Suspect]
     Active Substance: DEXTROSE
     Indication: PRODUCT USED FOR UNKNOWN INDICATION
     Route: 065
     Dates: start: 20150713

REACTIONS (3)
  - Hypoglycaemia [Unknown]
  - Syringe issue [Unknown]
  - Overdose [Unknown]

NARRATIVE: CASE EVENT DATE: 20150713
